FAERS Safety Report 13210649 (Version 1)
Quarter: 2017Q1

REPORT INFORMATION
  Report Type: Spontaneous
  Country: US (occurrence: US)
  Receive Date: 20170209
  Receipt Date: 20170209
  Transmission Date: 20170428
  Serious: Yes (Other)
  Sender: FDA-Public Use
  Company Number: None

PATIENT
  Age: 54 Year
  Sex: Female
  Weight: 62.55 kg

DRUGS (19)
  1. SPRYCEL [Suspect]
     Active Substance: DASATINIB
     Indication: CHRONIC MYELOID LEUKAEMIA
     Dosage: ?          QUANTITY:1 TABLET(S);?
     Route: 048
     Dates: start: 20140714, end: 20170207
  2. HYDROXYZINE [Concomitant]
     Active Substance: HYDROXYZINE HYDROCHLORIDE
  3. DAILY ONE MVI [Concomitant]
  4. VITAMIN C [Concomitant]
     Active Substance: ASCORBIC ACID
  5. PANTOTHENIC ACID [Concomitant]
     Active Substance: PANTOTHENIC ACID
  6. MAGNESIUM GLYCINATE [Concomitant]
     Active Substance: MAGNESIUM GLYCINATE
  7. COENZYME B COMPLEX [Concomitant]
  8. CETIRIZINE [Concomitant]
     Active Substance: CETIRIZINE HYDROCHLORIDE
  9. VITAMIN C 500 COMPLEX [Concomitant]
  10. SALINE NETTIE POT [Concomitant]
  11. MAG 64 [Concomitant]
  12. TYLENOL [Concomitant]
     Active Substance: ACETAMINOPHEN
  13. LEVOXYL [Concomitant]
     Active Substance: LEVOTHYROXINE SODIUM
  14. NATURE-THROID [Concomitant]
     Active Substance: THYROID, PORCINE
  15. ESTRACE [Concomitant]
     Active Substance: ESTRADIOL
  16. FLUTICASONE. [Concomitant]
     Active Substance: FLUTICASONE
  17. FISH OIL [Concomitant]
     Active Substance: FISH OIL
  18. GLUCOSAMINE [Concomitant]
     Active Substance: GLUCOSAMINE
  19. VITAMIN B6 [Concomitant]
     Active Substance: PYRIDOXINE HYDROCHLORIDE

REACTIONS (4)
  - Nausea [None]
  - Vertigo [None]
  - Toxicity to various agents [None]
  - Impaired work ability [None]

NARRATIVE: CASE EVENT DATE: 20170206
